FAERS Safety Report 9485788 (Version 2)
Quarter: 2013Q3

REPORT INFORMATION
  Report Type: Spontaneous
  Country: JP (occurrence: None)
  Receive Date: 20130813
  Receipt Date: 20130926
  Transmission Date: 20140515
  Serious: Yes (Death, Hospitalization)
  Sender: FDA-Public Use
  Company Number: KAD201308-000966

PATIENT
  Sex: Female

DRUGS (7)
  1. AMPHOTERICIN B [Suspect]
     Indication: ASPERGILLUS INFECTION
  2. LEVOFLOXACIN (LEVOFLOXACIN) [Suspect]
  3. AZATHIOPRINE (AZATHIOPRINE) [Suspect]
     Indication: ANTINEUTROPHIL CYTOPLASMIC ANTIBODY POSITIVE
  4. MEROPENEM (MEROPENEM) [Suspect]
  5. SULFAMETHOXAZOLE /TRIMETHOPRIM [Suspect]
  6. FLUCONAZOLE (FLUCONAZOLE) [Suspect]
  7. MICAFUNGIN (MICAFUNGIN) [Suspect]

REACTIONS (13)
  - Off label use [None]
  - Dyspnoea [None]
  - Pulmonary haemorrhage [None]
  - Pneumonia [None]
  - Purpura [None]
  - Vasculitis [None]
  - Thrombosis [None]
  - Myocarditis [None]
  - Thyroiditis [None]
  - Zygomycosis [None]
  - Aspergillus infection [None]
  - Pneumothorax [None]
  - Pulmonary necrosis [None]
